FAERS Safety Report 6922784-0 (Version None)
Quarter: 2010Q3

REPORT INFORMATION
  Report Type: 
  Country: None (occurrence: None)
  Receive Date: 20100811
  Receipt Date: 20100727
  Transmission Date: 20110219
  Serious: Yes (Other)
  Sender: FDA-Public Use
  Company Number: HA10-168-AE

PATIENT
  Age: 75 Year
  Sex: Male

DRUGS (12)
  1. TRAMADOL HCL [Suspect]
     Indication: PAIN
     Dosage: 1 TABLET, ORAL
     Route: 048
  2. FENTANYL CITRATE [Suspect]
     Indication: PAIN
     Dosage: 1PATCH, Q3DAYS, TRANSDERM
     Route: 062
  3. HYDROCODONE BITARTRATE AND ACETAMINOPHEN [Suspect]
     Indication: PAIN
     Dosage: 2TABLETS, ORAL
     Route: 048
  4. FENTANYL CITRATE [Suspect]
     Indication: RIB FRACTURE
     Dosage: TRANSDERM
     Route: 062
     Dates: start: 20100601
  5. OXYCODONE HCL [Suspect]
     Indication: BREAKTHROUGH PAIN
     Dosage: 10-15TABS DAILY, ORAL
     Route: 048
     Dates: start: 20090701
  6. FENTANYL CITRATE [Suspect]
     Indication: PAIN
     Dosage: 1PATCH, Q3DAYS, TRANSDERM
     Route: 062
     Dates: start: 20090701
  7. VICODIN [Concomitant]
  8. PLAVIX [Concomitant]
  9. METOPROLOL [Concomitant]
  10. LIPITOR [Concomitant]
  11. CYMBALTA [Concomitant]
  12. HYZAAR [Concomitant]

REACTIONS (7)
  - CONFUSIONAL STATE [None]
  - CONSCIOUSNESS FLUCTUATING [None]
  - DIZZINESS [None]
  - DRUG TOLERANCE DECREASED [None]
  - FALL [None]
  - RIB FRACTURE [None]
  - UNRESPONSIVE TO STIMULI [None]
